FAERS Safety Report 11063708 (Version 2)
Quarter: 2015Q2

REPORT INFORMATION
  Report Type: Spontaneous
  Country: US (occurrence: US)
  Receive Date: 20150424
  Receipt Date: 20150518
  Transmission Date: 20150821
  Serious: No
  Sender: FDA-Public Use
  Company Number: US-ELI_LILLY_AND_COMPANY-US201504007093

PATIENT
  Age: 64 Year
  Sex: Female

DRUGS (5)
  1. CITRACAL + D                       /01438101/ [Concomitant]
  2. ALEVE [Concomitant]
     Active Substance: NAPROXEN SODIUM
     Dosage: UNK, BID
  3. OXYCODONE [Concomitant]
     Active Substance: OXYCODONE
  4. FORTEO [Suspect]
     Active Substance: TERIPARATIDE
     Indication: OSTEOPOROSIS
     Dosage: UNK UNK, QD
     Route: 065
     Dates: start: 201408
  5. FORTEO [Suspect]
     Active Substance: TERIPARATIDE
     Dosage: UNK UNK, QD
     Route: 065
     Dates: end: 20150417

REACTIONS (10)
  - Upper extremity mass [Recovered/Resolved]
  - Sleep disorder due to a general medical condition [Unknown]
  - Crying [Unknown]
  - Tendonitis [Unknown]
  - Pain [Not Recovered/Not Resolved]
  - Arthralgia [Unknown]
  - Palatal swelling [Unknown]
  - Back pain [Not Recovered/Not Resolved]
  - Oral pain [Unknown]
  - Pain in extremity [Unknown]

NARRATIVE: CASE EVENT DATE: 201501
